FAERS Safety Report 6045111-2 (Version None)
Quarter: 2009Q1

REPORT INFORMATION
  Report Type: 
  Country: None (occurrence: None)
  Receive Date: 20090116
  Receipt Date: 20090116
  Transmission Date: 20090719
  Serious: Yes (Hospitalization)
  Sender: FDA-Public Use
  Company Number: None

PATIENT
  Sex: Male
  Weight: 78.5 kg

DRUGS (2)
  1. CYCLOPHOSPHAMIDE [Suspect]
     Dosage: 8000 MG
     Dates: end: 20081230
  2. G-CSF (FILGRASTIM, AMGEN) [Suspect]
     Dosage: 11520 MCG
     Dates: end: 20090113

REACTIONS (3)
  - FEBRILE NEUTROPENIA [None]
  - LOBAR PNEUMONIA [None]
  - PNEUMONIA ASPIRATION [None]
